FAERS Safety Report 8873930 (Version 1)
Quarter: 2012Q4

REPORT INFORMATION
  Report Type: 
  Country: US (occurrence: US)
  Receive Date: 20121030
  Receipt Date: 20121030
  Transmission Date: 20130627
  Serious: No
  Sender: FDA-Public Use
  Company Number: US-B.I. PHARMACEUTICALS,INC./RIDGEFIELD-2012-BP-26569BP

PATIENT
  Sex: Female
  Weight: 71.8 kg

DRUGS (15)
  1. MOBIC [Suspect]
     Indication: FIBROMYALGIA
     Dosage: 15 mg
     Dates: start: 2005
  2. PREMARIN [Suspect]
     Indication: HYSTERECTOMY
     Dosage: 1.25 mg
     Dates: start: 1987
  3. PREMARIN [Suspect]
     Dosage: 0.9 mg
  4. LIPITOR [Suspect]
     Indication: BLOOD CHOLESTEROL INCREASED
     Dosage: 20 mg
  5. ZOLOFT [Suspect]
     Indication: DEPRESSION
     Dosage: 100 mg
  6. ZOLOFT [Suspect]
     Indication: CHEST PAIN
  7. LYRICA [Suspect]
     Indication: FIBROMYALGIA
     Dosage: 100 mg
     Route: 048
     Dates: start: 201207
  8. LYRICA [Suspect]
     Indication: CARPAL TUNNEL SYNDROME
  9. INDERAL LA [Concomitant]
     Indication: MITRAL VALVE PROLAPSE
     Dosage: 60 mg
  10. INDERAL LA [Concomitant]
     Indication: RHEUMATIC HEART DISEASE
  11. INDERAL LA [Concomitant]
     Indication: CARDIAC DISORDER
  12. INDERAL LA [Concomitant]
     Indication: BLOOD PRESSURE ABNORMAL
  13. INDERAL LA [Concomitant]
     Indication: HEART RATE INCREASED
  14. FLEXERIL [Concomitant]
     Indication: MYALGIA
     Dosage: 20 mg
  15. XANAX [Concomitant]
     Indication: NERVOUSNESS
     Dosage: 2 mg

REACTIONS (7)
  - Musculoskeletal pain [Not Recovered/Not Resolved]
  - Fall [Unknown]
  - Abdominal discomfort [Unknown]
  - Headache [Not Recovered/Not Resolved]
  - Sneezing [Unknown]
  - Chest pain [Unknown]
  - Breast mass [Unknown]
